FAERS Safety Report 10674517 (Version 5)
Quarter: 2015Q1

REPORT INFORMATION
  Report Type: Spontaneous
  Country: DE (occurrence: DE)
  Receive Date: 20141224
  Receipt Date: 20150306
  Transmission Date: 20150720
  Serious: Yes (Other)
  Sender: FDA-Public Use
  Company Number: DE-PFIZER INC-2014351460

PATIENT
  Age: 15 Year
  Sex: Female
  Weight: 57 kg

DRUGS (2)
  1. GENOTROPIN [Suspect]
     Active Substance: SOMATROPIN
     Indication: TURNER^S SYNDROME
     Dosage: 12 MG, DAILY
     Route: 058
     Dates: start: 200301
  2. GENOTROPIN [Suspect]
     Active Substance: SOMATROPIN
     Dosage: 2 MG, DAILY
     Route: 058
     Dates: end: 201410

REACTIONS (1)
  - Fibroma [Not Recovered/Not Resolved]

NARRATIVE: CASE EVENT DATE: 201410
